FAERS Safety Report 8525710-6 (Version None)
Quarter: 2012Q3

REPORT INFORMATION
  Report Type: 
  Country: None (occurrence: None)
  Receive Date: 20120720
  Receipt Date: 20120710
  Transmission Date: 20120928
  Serious: Yes (Hospitalization, Other)
  Sender: FDA-Public Use
  Company Number: US-009507513-1203USA00790

PATIENT

DRUGS (12)
  1. TOPROL-XL [Concomitant]
  2. VITAMIN D (UNSPECIFIED) [Concomitant]
     Dosage: 100 MG, UNK
     Dates: start: 19900101
  3. CALCIUM CITRATE [Concomitant]
     Dosage: 100 MG, UNK
     Dates: start: 19900101
  4. COUMADIN [Concomitant]
  5. VITAMIN B (UNSPECIFIED) [Concomitant]
     Dosage: 100 MG, UNK
     Dates: start: 19900101
  6. LOVAZA [Concomitant]
     Dosage: 100 MG, UNK
     Dates: start: 19900101
  7. FOSAMAX [Suspect]
     Indication: BONE DENSITY DECREASED
     Dosage: UNK
     Route: 048
     Dates: start: 20040101, end: 20090101
  8. ASCORBIC ACID [Concomitant]
     Dosage: 100 MG, UNK
     Dates: start: 19900101
  9. FOSAMAX [Suspect]
     Dosage: UNK
     Route: 048
     Dates: start: 20050501
  10. MAGNESIUM (UNSPECIFIED) [Concomitant]
     Dosage: 100 MG, UNK
     Dates: start: 19900101
  11. XANTHOPHYLL [Concomitant]
     Dosage: 100 MG, UNK
     Dates: start: 19900101
  12. ACTONEL [Suspect]
     Indication: BONE DENSITY DECREASED
     Route: 048
     Dates: start: 20090101

REACTIONS (13)
  - COLON CANCER [None]
  - TOOTH DISORDER [None]
  - CATARACT OPERATION [None]
  - NECK PAIN [None]
  - OSTEOPENIA [None]
  - CHEST DISCOMFORT [None]
  - FEMUR FRACTURE [None]
  - ATRIAL FIBRILLATION [None]
  - OSTEOPOROSIS [None]
  - FALL [None]
  - HYPERTENSION [None]
  - PULMONARY CONGESTION [None]
  - HYPERLIPIDAEMIA [None]
